FAERS Safety Report 8310592-8 (Version None)
Quarter: 2012Q2

REPORT INFORMATION
  Report Type: 
  Country: None (occurrence: None)
  Receive Date: 20120425
  Receipt Date: 20120425
  Transmission Date: 20120825
  Serious: No
  Sender: FDA-Public Use
  Company Number: None

PATIENT
  Age: 64 Year
  Sex: Female
  Weight: 70.306 kg

DRUGS (1)
  1. ESCITALOPRAM [Suspect]
     Indication: DEPRESSION
     Dosage: 10MG
     Route: 048
     Dates: start: 20120401, end: 20120421

REACTIONS (6)
  - PRODUCT SUBSTITUTION ISSUE [None]
  - ANGER [None]
  - ABNORMAL BEHAVIOUR [None]
  - MUSCLE SPASMS [None]
  - NECK PAIN [None]
  - MUSCULOSKELETAL PAIN [None]
